FAERS Safety Report 10108991 (Version 1)
Quarter: 2014Q2

REPORT INFORMATION
  Report Type: Spontaneous
  Country: US (occurrence: US)
  Receive Date: 20140425
  Receipt Date: 20140425
  Transmission Date: 20141212
  Serious: Yes (Hospitalization)
  Sender: FDA-Public Use
  Company Number: US-BAYER-2014-058778

PATIENT
  Sex: Female

DRUGS (2)
  1. YAZ [Suspect]
  2. BEYAZ [Suspect]

REACTIONS (7)
  - Cerebrovascular accident [None]
  - Injury [None]
  - Anxiety [None]
  - Pain [None]
  - Anhedonia [None]
  - Emotional distress [None]
  - Quality of life decreased [None]
